FAERS Safety Report 7826158-X (Version None)
Quarter: 2011Q4

REPORT INFORMATION
  Report Type: 
  Country: None (occurrence: None)
  Receive Date: 20111020
  Receipt Date: 20111004
  Transmission Date: 20120403
  Serious: Yes (Death)
  Sender: FDA-Public Use
  Company Number: FR-ROCHE-801778

PATIENT
  Sex: Female

DRUGS (4)
  1. IRINOTECAN HCL [Concomitant]
  2. AVASTIN [Suspect]
     Indication: COLORECTAL CANCER METASTATIC
     Route: 042
     Dates: start: 20110526, end: 20110805
  3. FLUOROURACIL [Suspect]
     Indication: PRODUCT USED FOR UNKNOWN INDICATION
     Route: 042
     Dates: start: 20110526, end: 20110805
  4. LEUCOVORIN CALCIUM [Suspect]
     Indication: PRODUCT USED FOR UNKNOWN INDICATION
     Route: 042
     Dates: start: 20110526, end: 20110805

REACTIONS (5)
  - THROMBOTIC MICROANGIOPATHY [None]
  - ANAEMIA [None]
  - RENAL FAILURE [None]
  - ASTHENIA [None]
  - MICROANGIOPATHY [None]
